FAERS Safety Report 9175925 (Version 1)
Quarter: 2013Q1

REPORT INFORMATION
  Report Type: Report from Study
  Country: DE (occurrence: DE)
  Receive Date: 20130320
  Receipt Date: 20130320
  Transmission Date: 20140127
  Serious: Yes (Hospitalization, Other)
  Sender: FDA-Public Use
  Company Number: DE-UCBSA-080248

PATIENT
  Age: 49 Year
  Sex: Male

DRUGS (8)
  1. VIMPAT [Suspect]
     Indication: EPILEPSY
     Dosage: STARTING DOE: 50 MG /DAY
     Dates: start: 20080915, end: 2008
  2. VIMPAT [Suspect]
     Indication: EPILEPSY
     Dosage: DOSE AT VISIT: 200 MG/DAY
     Dates: start: 2008
  3. VIMPAT [Suspect]
     Indication: EPILEPSY
     Dosage: DOSE AT VISIT: 400 MG/ DAY
     Dates: end: 2009
  4. VIMPAT [Suspect]
     Indication: EPILEPSY
     Dosage: DOSE AT VISIT: 300 MG/ DAY
     Dates: start: 2009
  5. CARBAMAZEPINE [Concomitant]
     Indication: EPILEPSY
     Dosage: DOSE 1500 MG/DAY
     Dates: end: 2008
  6. CARBAMAZEPINE [Concomitant]
     Indication: EPILEPSY
     Dosage: 900 MG/DAY
     Dates: end: 2009
  7. LEVETIRACETAM [Concomitant]
     Indication: EPILEPSY
     Dosage: 2000 MG/DAY
     Dates: start: 2009
  8. VIGABATRIN [Concomitant]
     Indication: EPILEPSY
     Dosage: DOSE 3000 MG/DAY
     Dates: end: 2009

REACTIONS (2)
  - Epilepsy [Unknown]
  - Convulsion [Unknown]
